FAERS Safety Report 11719003 (Version 2)
Quarter: 2015Q4

REPORT INFORMATION
  Report Type: Spontaneous
  Country: BE (occurrence: BE)
  Receive Date: 20151110
  Receipt Date: 20151120
  Transmission Date: 20160304
  Serious: No
  Sender: FDA-Public Use
  Company Number: BE-TAKEDA-2015TUS015517

PATIENT
  Age: 39 Year
  Sex: Female
  Weight: 61 kg

DRUGS (2)
  1. ENTYVIO [Suspect]
     Active Substance: VEDOLIZUMAB
     Indication: COLITIS ULCERATIVE
     Dosage: 300 MG, UNK
     Route: 042
     Dates: start: 20150904
  2. CLIPPER [Concomitant]
     Active Substance: BECLOMETHASONE DIPROPIONATE
     Dosage: 5 MG, UNK
     Route: 048
     Dates: start: 20150611

REACTIONS (1)
  - Night sweats [Recovering/Resolving]

NARRATIVE: CASE EVENT DATE: 20151001
